FAERS Safety Report 20585301 (Version 1)
Quarter: 2022Q1

REPORT INFORMATION
  Report Type: Spontaneous
  Country: US (occurrence: US)
  Receive Date: 20220312
  Receipt Date: 20220312
  Transmission Date: 20220423
  Serious: Yes (Death, Other)
  Sender: FDA-Public Use
  Company Number: US-UNITED THERAPEUTICS-UNT-2022-005076

PATIENT
  Age: 72 Year
  Sex: Female
  Weight: 49.887 kg

DRUGS (2)
  1. REMODULIN [Suspect]
     Active Substance: TREPROSTINIL
     Indication: Pulmonary arterial hypertension
     Dosage: UNK, CONTINUING
     Route: 058
     Dates: start: 20190503
  2. REMODULIN [Suspect]
     Active Substance: TREPROSTINIL
     Dosage: 0.0529 ?G/KG, CONTINUING
     Route: 058

REACTIONS (2)
  - General physical health deterioration [Fatal]
  - Hypotension [Unknown]

NARRATIVE: CASE EVENT DATE: 20220303
